FAERS Safety Report 6336395-1 (Version None)
Quarter: 2009Q3

REPORT INFORMATION
  Report Type: 
  Country: None (occurrence: None)
  Receive Date: 20090828
  Receipt Date: 20090818
  Transmission Date: 20100115
  Serious: Yes (Life-Threatening, Hospitalization, Disabling)
  Sender: FDA-Public Use
  Company Number: ADR13122009

PATIENT
  Sex: Female

DRUGS (4)
  1. CITALOPRAM HYDROBROMIDE [Suspect]
     Indication: DEPRESSION
     Dosage: ORAL
     Route: 048
  2. IMIGRAN [Concomitant]
  3. IMODIUM [Concomitant]
  4. NORDETTE-28 [Concomitant]

REACTIONS (12)
  - ABDOMINAL PAIN [None]
  - ANAPHYLACTIC SHOCK [None]
  - CIRCULATORY COLLAPSE [None]
  - DIARRHOEA [None]
  - DRUG INTERACTION [None]
  - DYSPNOEA [None]
  - GASTROENTERITIS [None]
  - HYPERHIDROSIS [None]
  - IMPAIRED WORK ABILITY [None]
  - MALAISE [None]
  - PHARYNGEAL OEDEMA [None]
  - THROAT TIGHTNESS [None]
